FAERS Safety Report 9695880 (Version 1)
Quarter: 2013Q4

REPORT INFORMATION
  Report Type: Spontaneous
  Country: US (occurrence: None)
  Receive Date: 20131115
  Receipt Date: 20131115
  Transmission Date: 20140711
  Serious: Yes (Life-Threatening)
  Sender: FDA-Public Use
  Company Number: 2003399

PATIENT
  Sex: 0

DRUGS (1)
  1. EPINEPHRINE [Suspect]
     Indication: HAEMORRHAGE

REACTIONS (5)
  - Cardiac failure [None]
  - Acute pulmonary oedema [None]
  - Vasoconstriction [None]
  - Infusion site extravasation [None]
  - Incorrect route of drug administration [None]
